FAERS Safety Report 6298002-6 (Version None)
Quarter: 2009Q3

REPORT INFORMATION
  Report Type: 
  Country: None (occurrence: None)
  Receive Date: 20090805
  Receipt Date: 20090730
  Transmission Date: 20100115
  Serious: Yes (Other)
  Sender: FDA-Public Use
  Company Number: B0587263A

PATIENT
  Age: 21 Year
  Sex: Female

DRUGS (3)
  1. RELENZA [Suspect]
     Indication: DRUG USE FOR UNKNOWN INDICATION
     Route: 065
  2. NEBULISED SALBUTAMOL [Concomitant]
  3. PREDNISOLONE [Concomitant]
     Dosage: 40MG TWICE PER DAY

REACTIONS (1)
  - ASTHMA [None]
